FAERS Safety Report 5294476-8 (Version None)
Quarter: 2007Q2

REPORT INFORMATION
  Report Type: 
  Country: None (occurrence: None)
  Receive Date: 20070412
  Receipt Date: 20070329
  Transmission Date: 20071010
  Serious: Yes (Death, Hospitalization)
  Sender: FDA-Public Use
  Company Number: HQWYE946513DEC06

PATIENT
  Sex: Male
  Weight: 54 kg

DRUGS (7)
  1. ENBREL [Suspect]
     Indication: RHEUMATOID ARTHRITIS
     Route: 058
     Dates: start: 20060927, end: 20061208
  2. PREDNISOLONE [Concomitant]
     Indication: RHEUMATOID ARTHRITIS
     Dosage: UNKNOWN
     Route: 048
  3. NU-LOTAN [Concomitant]
     Dosage: UNKNOWN
     Route: 048
  4. LOXONIN [Concomitant]
     Indication: RHEUMATOID ARTHRITIS
     Dosage: UNKNOWN
     Route: 048
  5. NORVASC [Concomitant]
     Dosage: UNKNOWN
     Route: 048
  6. PREDONINE [Concomitant]
     Indication: RHEUMATOID ARTHRITIS
     Dosage: UNKNOWN
     Route: 048
  7. TAGAMET [Concomitant]
     Dosage: UNKNOWN
     Route: 048

REACTIONS (3)
  - CONDITION AGGRAVATED [None]
  - EMPHYSEMA [None]
  - INTERSTITIAL LUNG DISEASE [None]
